FAERS Safety Report 5328031-8 (Version None)
Quarter: 2007Q2

REPORT INFORMATION
  Report Type: 
  Country: None (occurrence: None)
  Receive Date: 20070514
  Receipt Date: 20070508
  Transmission Date: 20071010
  Serious: Yes (Other)
  Sender: FDA-Public Use
  Company Number: 009306

PATIENT
  Age: 23 Year
  Sex: Female
  Weight: 86.2 kg

DRUGS (9)
  1. CLARAVIS [Suspect]
     Dosage: 80 MG, QD, ORAL
     Route: 048
     Dates: start: 20061104, end: 20061127
  2. FOLIC ACID [Concomitant]
  3. AZULFIDINE [Concomitant]
  4. ... [Concomitant]
  5. ... [Concomitant]
  6. ... [Concomitant]
  7. ... [Concomitant]
  8. ... [Concomitant]
  9. ... [Concomitant]

REACTIONS (5)
  - ABORTION SPONTANEOUS [None]
  - DRUG EXPOSURE DURING PREGNANCY [None]
  - PREGNANCY WITH CONTRACEPTIVE DEVICE [None]
  - RETAINED PRODUCTS OF CONCEPTION [None]
  - UNINTENDED PREGNANCY [None]
